FAERS Safety Report 4689673-6 (Version None)
Quarter: 2005Q2

REPORT INFORMATION
  Report Type: 
  Country: None (occurrence: None)
  Receive Date: 20050614
  Receipt Date: 20050601
  Transmission Date: 20051028
  Serious: Yes (Life-Threatening, Hospitalization)
  Sender: FDA-Public Use
  Company Number: GB-JNJFOC-20050600080

PATIENT
  Age: 74 Year
  Sex: Female
  Weight: 56 kg

DRUGS (6)
  1. REMICADE [Suspect]
     Indication: RHEUMATOID ARTHRITIS
     Route: 042
  2. ENBREL [Suspect]
     Indication: RHEUMATOID ARTHRITIS
     Dosage: 4 VIALS.
     Route: 058
  3. FOSAMAX [Concomitant]
     Route: 049
  4. CALCICHEW [Concomitant]
     Dosage: 2 TABLETS
     Route: 049
  5. ATENOLOL [Concomitant]
     Route: 049
  6. BENDROFLUAZIDE [Concomitant]
     Route: 049

REACTIONS (1)
  - DISSEMINATED TUBERCULOSIS [None]
